FAERS Safety Report 6814671-3 (Version None)
Quarter: 2010Q2

REPORT INFORMATION
  Report Type: 
  Country: None (occurrence: None)
  Receive Date: 20100629
  Receipt Date: 20100618
  Transmission Date: 20101027
  Serious: Yes (Life-Threatening, Hospitalization)
  Sender: FDA-Public Use
  Company Number: IPC201006-000168

PATIENT
  Age: 58 Year
  Sex: Female

DRUGS (9)
  1. HYDROCHLOROTHIAZIDE [Suspect]
     Dosage: 25 MG, 1 IN 1 D
  2. ATENOLOL [Suspect]
     Dosage: 50 MG, 2 IN 1 D
  3. QUETIAPINE [Suspect]
     Dosage: 150 MG, 3 IN 1 D
  4. CITALOPRAM HYDROBROMIDE [Suspect]
     Dosage: 60 MG, 1 IN 1 D
  5. CLONAZEPAM [Suspect]
     Dosage: 3 MG, 3 IN 1 D
  6. ACAMPROSATE [Suspect]
     Dosage: 999 MG, 3 IN 1 D
  7. RANITIDINE [Suspect]
     Dosage: 150 MG, 1 IN 1 D
  8. MIRTAZAPINE [Suspect]
     Dosage: QHS
  9. ROSUVASTATIN [Suspect]
     Dosage: 10 MG, 1 IN 1 D

REACTIONS (7)
  - ASTHENIA [None]
  - BLOOD POTASSIUM DECREASED [None]
  - ELECTROCARDIOGRAM QT PROLONGED [None]
  - HYPERHIDROSIS [None]
  - MALAISE [None]
  - NAUSEA [None]
  - VENTRICULAR FIBRILLATION [None]
